FAERS Safety Report 24139505 (Version 1)
Quarter: 2024Q3

REPORT INFORMATION
  Report Type: Spontaneous
  Country: AU (occurrence: AU)
  Receive Date: 20240726
  Receipt Date: 20240726
  Transmission Date: 20241016
  Serious: Yes (Hospitalization)
  Sender: GE HEALTHCARE
  Company Number: AU-GE HEALTHCARE-2024CSU007714

PATIENT
  Age: 70 Year
  Sex: Male

DRUGS (3)
  1. OMNIPAQUE [Suspect]
     Active Substance: IOHEXOL
     Indication: Angiogram cerebral
     Dosage: 1 ML, TOTAL
     Route: 042
     Dates: start: 20240624, end: 20240624
  2. PREDNISOLONE [Concomitant]
     Active Substance: PREDNISOLONE
     Indication: Premedication
     Dosage: 50 MG
     Route: 048
     Dates: start: 20240624, end: 20240624
  3. PREDNISOLONE [Concomitant]
     Active Substance: PREDNISOLONE
     Dosage: 50 MG
     Route: 048
     Dates: start: 20240624, end: 20240624

REACTIONS (6)
  - Aphasia [Unknown]
  - Dyskinesia [Unknown]
  - Dizziness [Unknown]
  - Swollen tongue [Unknown]
  - Rash [Recovered/Resolved]
  - Pruritus [Recovered/Resolved]

NARRATIVE: CASE EVENT DATE: 20240624
